FAERS Safety Report 23182742 (Version 2)
Quarter: 2024Q1

REPORT INFORMATION
  Report Type: Spontaneous
  Country: US (occurrence: US)
  Receive Date: 20231114
  Receipt Date: 20240201
  Transmission Date: 20240410
  Serious: Yes (Hospitalization, Other)
  Sender: FDA-Public Use
  Company Number: US-PFIZER INC-202300360466

PATIENT
  Age: 54 Year
  Sex: Female
  Weight: 84.807 kg

DRUGS (33)
  1. XELJANZ XR [Suspect]
     Active Substance: TOFACITINIB CITRATE
     Indication: Ankylosing spondylitis
     Dosage: 11 MG, DAILY
     Route: 048
     Dates: start: 202206, end: 20231218
  2. CYCLOBENZAPRINE [Concomitant]
     Active Substance: CYCLOBENZAPRINE
     Dosage: UNK, AS NEEDED
     Dates: start: 202309
  3. JARDIANCE [Concomitant]
     Active Substance: EMPAGLIFLOZIN
     Dosage: UNK
     Dates: start: 202308
  4. BENZONATATE [Concomitant]
     Active Substance: BENZONATATE
     Dosage: UNK, AS NEEDED
     Dates: start: 202308
  5. LOSARTAN [Concomitant]
     Active Substance: LOSARTAN
     Dosage: UNK
     Dates: start: 202308
  6. METFORMIN HYDROCHLORIDE [Concomitant]
     Active Substance: METFORMIN HYDROCHLORIDE
     Dosage: UNK
     Dates: start: 202302
  7. PENTOXIFYLLINE [Concomitant]
     Active Substance: PENTOXIFYLLINE
     Dosage: UNK
     Dates: start: 202308
  8. HUMALOG KWIKPEN [Concomitant]
     Active Substance: INSULIN LISPRO
     Dosage: UNK
     Dates: start: 202308
  9. HORIZANT [Concomitant]
     Active Substance: GABAPENTIN ENACARBIL
     Dosage: UNK
     Dates: start: 202306
  10. SPIRONOLACTONE [Concomitant]
     Active Substance: SPIRONOLACTONE
     Dosage: UNK
     Dates: start: 202308
  11. CARVEDILOL [Concomitant]
     Active Substance: CARVEDILOL
     Dosage: UNK
     Dates: start: 202308
  12. TRAZODONE [Concomitant]
     Active Substance: TRAZODONE HYDROCHLORIDE
     Dosage: UNK
     Dates: start: 202306
  13. SEMGLEE [INSULIN GLARGINE YFGN] [Concomitant]
     Dosage: UNK
     Dates: start: 202308
  14. DICLOFENAC SODIUM [Concomitant]
     Active Substance: DICLOFENAC\DICLOFENAC SODIUM
     Dosage: UNK
     Dates: start: 202309
  15. PREDNISONE [Concomitant]
     Active Substance: PREDNISONE
     Dosage: UNK
     Dates: start: 2022
  16. CLOPIDOGREL [Concomitant]
     Active Substance: CLOPIDOGREL BISULFATE
     Dosage: UNK
  17. GABAPENTIN [Concomitant]
     Active Substance: GABAPENTIN
     Dosage: UNK
     Dates: start: 202306
  18. FENOFIBRATE [Concomitant]
     Active Substance: FENOFIBRATE
     Dosage: UNK
     Dates: start: 2012
  19. PANTOPRAZOLE [Concomitant]
     Active Substance: PANTOPRAZOLE
     Dosage: UNK
     Dates: start: 2012
  20. FUROSEMIDE [Concomitant]
     Active Substance: FUROSEMIDE
     Dosage: UNK
     Dates: start: 202308
  21. CELECOXIB [Concomitant]
     Active Substance: CELECOXIB
     Dosage: UNK
     Dates: start: 202306
  22. PRAVASTATIN [Concomitant]
     Active Substance: PRAVASTATIN
     Dosage: UNK
     Dates: start: 2012
  23. ALLERGY RELIEF MEDICINE [Concomitant]
     Dosage: 25 MG
     Dates: start: 2012
  24. AMOXICILLIN [Concomitant]
     Active Substance: AMOXICILLIN
     Dosage: UNK
  25. ASPIRIN [Concomitant]
     Active Substance: ASPIRIN
     Dosage: UNK
     Dates: start: 2012
  26. CALCIUM 600 PLUS VITAMIN D3 [Concomitant]
     Dosage: UNK
     Dates: start: 2012
  27. LORATADINE [Concomitant]
     Active Substance: LORATADINE
     Dosage: UNK
  28. HYDROCHLOROTHIAZIDE [Concomitant]
     Active Substance: HYDROCHLOROTHIAZIDE
     Dosage: UNK
  29. CALCIUM [Concomitant]
     Active Substance: CALCIUM
     Dosage: UNK
  30. POTASSIUM [Concomitant]
     Active Substance: POTASSIUM
     Dosage: UNK
  31. PROAIR HFA [Concomitant]
     Active Substance: ALBUTEROL SULFATE
     Dosage: UNK
  32. PROBIOTIC ACIDOPHILUS [CALCIUM PHOSPHATE DIBASIC;LACTOBACILLUS ACIDOPH [Concomitant]
     Dosage: UNK
  33. TYLENOL [Concomitant]
     Active Substance: ACETAMINOPHEN
     Dosage: UNK

REACTIONS (2)
  - Pancreatitis [Unknown]
  - Myocardial infarction [Recovered/Resolved]

NARRATIVE: CASE EVENT DATE: 20230824
